FAERS Safety Report 4376514-X (Version None)
Quarter: 2004Q2

REPORT INFORMATION
  Report Type: 
  Country: None (occurrence: None)
  Receive Date: 20040614
  Receipt Date: 20040504
  Transmission Date: 20050107
  Serious: Yes (Life-Threatening, Hospitalization, Other)
  Sender: FDA-Public Use
  Company Number: FR-BRISTOL-MYERS SQUIBB COMPANY-12579801

PATIENT
  Age: 25 Year
  Sex: Female

DRUGS (1)
  1. KENACORT [Suspect]
     Indication: KELOID SCAR
     Route: 030
     Dates: start: 20040502, end: 20040504

REACTIONS (2)
  - ANAPHYLACTIC SHOCK [None]
  - URTICARIA [None]
